FAERS Safety Report 12926167 (Version 3)
Quarter: 2018Q3

REPORT INFORMATION
  Report Type: Spontaneous
  Country: US (occurrence: US)
  Receive Date: 20161108
  Receipt Date: 20180709
  Transmission Date: 20181010
  Serious: No
  Sender: FDA-Public Use
  Company Number: US-SA-2016SA174275

PATIENT
  Age: 65 Year
  Sex: Male
  Weight: 75 kg

DRUGS (2)
  1. PRALUENT [Suspect]
     Active Substance: ALIROCUMAB
     Dosage: 75 MG,QOW
     Route: 058
     Dates: start: 20160823, end: 20180520
  2. PRALUENT [Suspect]
     Active Substance: ALIROCUMAB
     Indication: TYPE IIA HYPERLIPIDAEMIA
     Dosage: 75 MG,QOW
     Route: 058
     Dates: start: 20160823

REACTIONS (8)
  - Pain in extremity [Unknown]
  - Nasal congestion [Unknown]
  - Back pain [Not Recovered/Not Resolved]
  - Sleep disorder [Unknown]
  - Laboratory test abnormal [Unknown]
  - Abnormal dreams [Unknown]
  - Limb discomfort [Recovered/Resolved]
  - Arthralgia [Recovered/Resolved]

NARRATIVE: CASE EVENT DATE: 20160824
